FAERS Safety Report 17319935 (Version 1)
Quarter: 2020Q1

REPORT INFORMATION
  Report Type: Spontaneous
  Country: CN (occurrence: CN)
  Receive Date: 20200126
  Receipt Date: 20200126
  Transmission Date: 20200409
  Serious: Yes (Death)
  Sender: FDA-Public Use
  Company Number: CN-NOVOPROD-708398

PATIENT
  Age: 85 Year
  Weight: 50 kg

DRUGS (2)
  1. NOVOLIN 30R [Suspect]
     Active Substance: INSULIN HUMAN
     Dosage: 30 U AT NIGHT
     Route: 065
     Dates: start: 20200119, end: 20200119
  2. NOVOLIN 30R [Suspect]
     Active Substance: INSULIN HUMAN
     Indication: TYPE 2 DIABETES MELLITUS
     Dosage: 15 IU, QD (10-0-5)
     Route: 065

REACTIONS (1)
  - Suspected suicide [Fatal]

NARRATIVE: CASE EVENT DATE: 20200120
